FAERS Safety Report 5529517-3 (Version None)
Quarter: 2007Q4

REPORT INFORMATION
  Report Type: 
  Country: None (occurrence: None)
  Receive Date: 20071129
  Receipt Date: 20071120
  Transmission Date: 20080405
  Serious: Yes (Hospitalization)
  Sender: FDA-Public Use
  Company Number: FR-SANOFI-SYNTHELABO-A02200703321

PATIENT
  Sex: Female

DRUGS (9)
  1. MOPRAL [Suspect]
     Indication: GASTRITIS PROPHYLAXIS
     Dosage: UNK
     Route: 048
  2. DEROXAT [Suspect]
     Indication: DEPRESSION
     Dosage: UNK
     Route: 048
  3. PREVISCAN [Suspect]
     Indication: AORTIC VALVE DISEASE
     Dosage: UNK
     Route: 048
  4. MABTHERA [Suspect]
     Indication: CASTLEMAN'S DISEASE
     Route: 042
     Dates: start: 20050525, end: 20050620
  5. PREDNISONE TAB [Suspect]
     Indication: RHEUMATOID ARTHRITIS
     Route: 048
  6. PLAQUENIL [Suspect]
     Indication: RHEUMATOID ARTHRITIS
     Route: 048
  7. PARACETAMOL [Concomitant]
     Route: 048
     Dates: start: 20050525, end: 20050620
  8. ATARAX [Concomitant]
     Route: 065
     Dates: start: 20050525, end: 20050620
  9. SOLU-MEDROL [Concomitant]
     Route: 051
     Dates: start: 20050525, end: 20050620

REACTIONS (1)
  - CRYPTOGENIC ORGANISING PNEUMONIA [None]
